FAERS Safety Report 21051913 (Version 2)
Quarter: 2022Q3

REPORT INFORMATION
  Report Type: Report from Study
  Country: BE (occurrence: None)
  Receive Date: 20220707
  Receipt Date: 20220912
  Transmission Date: 20221027
  Serious: Yes (Hospitalization)
  Sender: FDA-Public Use
  Company Number: BE-ROCHE-3117798

PATIENT
  Age: 69 Year
  Sex: Male
  Weight: 62.5 kg

DRUGS (36)
  1. GLOFITAMAB [Suspect]
     Active Substance: GLOFITAMAB
     Indication: Diffuse large B-cell lymphoma
     Dosage: START DATE OF MOST RECENT DOSE OF STUDY DRUG PRIOR TO SAE 08-JUN-2022
     Route: 042
     Dates: start: 20220608
  2. OBINUTUZUMAB [Suspect]
     Active Substance: OBINUTUZUMAB
     Indication: Diffuse large B-cell lymphoma
     Dosage: OBINUTUZUMAB GIVEN ON 01/JUN/2022?DOSE LAST STUDY DRUG ADMIN PRIOR AE 1000 MG
     Route: 042
     Dates: start: 20220601
  3. GEMCITABINE [Suspect]
     Active Substance: GEMCITABINE
     Indication: Diffuse large B-cell lymphoma
     Route: 042
     Dates: start: 20220602
  4. OXALIPLATIN [Suspect]
     Active Substance: OXALIPLATIN
     Indication: Diffuse large B-cell lymphoma
     Route: 042
     Dates: start: 20220602
  5. ACETAMINOPHEN [Concomitant]
     Active Substance: ACETAMINOPHEN
     Indication: Pyrexia
     Route: 042
     Dates: start: 20220601, end: 20220601
  6. ACETAMINOPHEN [Concomitant]
     Active Substance: ACETAMINOPHEN
     Indication: Infusion related reaction
     Route: 048
     Dates: start: 20220616
  7. ACETAMINOPHEN [Concomitant]
     Active Substance: ACETAMINOPHEN
     Route: 048
     Dates: start: 20220622, end: 20220622
  8. SOLU-MEDROL [Concomitant]
     Active Substance: METHYLPREDNISOLONE SODIUM SUCCINATE
     Indication: Infusion related reaction
     Route: 042
     Dates: start: 20220601, end: 20220601
  9. SOLU-MEDROL [Concomitant]
     Active Substance: METHYLPREDNISOLONE SODIUM SUCCINATE
     Route: 042
     Dates: start: 20220609, end: 20220609
  10. MOTILIUM [Concomitant]
     Active Substance: DOMPERIDONE
     Route: 048
     Dates: start: 20220608
  11. ASCORBIC ACID\MINERALS\VITAMINS [Concomitant]
     Active Substance: ASCORBIC ACID\MINERALS\VITAMINS
     Route: 048
     Dates: start: 20220608
  12. ALLOPURINOL [Concomitant]
     Active Substance: ALLOPURINOL
     Indication: Hyperuricaemia
     Route: 048
     Dates: start: 20220601, end: 20220605
  13. ALLOPURINOL [Concomitant]
     Active Substance: ALLOPURINOL
     Route: 048
     Dates: start: 20220608, end: 20220612
  14. ALLOPURINOL [Concomitant]
     Active Substance: ALLOPURINOL
     Route: 048
     Dates: start: 20220615, end: 20220619
  15. ALOXI [Concomitant]
     Active Substance: PALONOSETRON HYDROCHLORIDE
     Indication: Nausea
     Route: 042
     Dates: start: 20220602, end: 20220602
  16. ZYRTEC (BELGIUM) [Concomitant]
     Indication: Infusion related reaction
     Route: 048
     Dates: start: 20220604
  17. ZYRTEC (BELGIUM) [Concomitant]
     Route: 048
     Dates: start: 20220608, end: 20220608
  18. ZYRTEC (BELGIUM) [Concomitant]
     Route: 048
     Dates: start: 20220614, end: 20220614
  19. ZYRTEC (BELGIUM) [Concomitant]
     Route: 048
     Dates: start: 20220601, end: 20220601
  20. ZYRTEC (BELGIUM) [Concomitant]
     Route: 048
     Dates: start: 20220622, end: 20220622
  21. ZYRTEC (BELGIUM) [Concomitant]
     Route: 048
     Dates: start: 20220713, end: 20220713
  22. NEULASTA [Concomitant]
     Active Substance: PEGFILGRASTIM
     Indication: Neutropenia
     Route: 058
     Dates: start: 20220603
  23. ALIZAPRIDE HYDROCHLORIDE [Concomitant]
     Active Substance: ALIZAPRIDE HYDROCHLORIDE
     Indication: Nausea
     Dosage: 50 AMPULE
     Route: 042
     Dates: start: 20220608, end: 20220608
  24. ACETAMINOPHEN [Concomitant]
     Active Substance: ACETAMINOPHEN
     Indication: Infusion related reaction
     Route: 048
     Dates: start: 20220601, end: 20220601
  25. ACETAMINOPHEN [Concomitant]
     Active Substance: ACETAMINOPHEN
     Route: 048
     Dates: start: 20220608
  26. ACETAMINOPHEN [Concomitant]
     Active Substance: ACETAMINOPHEN
     Route: 048
     Dates: start: 20220713, end: 20220713
  27. DEXAMETHASONE [Concomitant]
     Active Substance: DEXAMETHASONE
     Indication: Infusion related reaction
     Route: 042
     Dates: start: 20220608, end: 20220613
  28. DEXAMETHASONE [Concomitant]
     Active Substance: DEXAMETHASONE
     Route: 042
     Dates: start: 20220805, end: 20220805
  29. DEXAMETHASONE [Concomitant]
     Active Substance: DEXAMETHASONE
     Route: 042
     Dates: start: 20220713, end: 20220713
  30. DEXAMETHASONE [Concomitant]
     Active Substance: DEXAMETHASONE
     Route: 042
     Dates: start: 20220622, end: 20220622
  31. PANTOPRAZOLE SODIUM [Concomitant]
     Active Substance: PANTOPRAZOLE SODIUM
     Dates: start: 20220826
  32. MOVICOL [Concomitant]
     Active Substance: POLYETHYLENE GLYCOL 3350\POTASSIUM CHLORIDE\SODIUM BICARBONATE\SODIUM CHLORIDE
     Indication: Constipation
     Dosage: 1 U
     Route: 048
     Dates: start: 20220616
  33. SCHERIPROCT (BELGIUM) [Concomitant]
     Dosage: 1 OTHER
     Route: 061
     Dates: start: 20220616
  34. TAMSULOSIN HYDROCHLORIDE [Concomitant]
     Active Substance: TAMSULOSIN HYDROCHLORIDE
     Route: 048
     Dates: start: 20220617
  35. MEDROL [Concomitant]
     Active Substance: METHYLPREDNISOLONE
     Indication: Cytokine release syndrome
     Route: 048
     Dates: start: 20220617, end: 20220621
  36. MEDROL [Concomitant]
     Active Substance: METHYLPREDNISOLONE
     Route: 001
     Dates: start: 20220617

REACTIONS (2)
  - Cytokine release syndrome [Recovered/Resolved]
  - Alanine aminotransferase increased [Recovered/Resolved]

NARRATIVE: CASE EVENT DATE: 20220608
